FAERS Safety Report 4772174-4 (Version None)
Quarter: 2005Q3

REPORT INFORMATION
  Report Type: 
  Country: None (occurrence: None)
  Receive Date: 20050919
  Receipt Date: 20040929
  Transmission Date: 20060218
  Serious: No
  Sender: FDA-Public Use
  Company Number: US-BRISTOL-MYERS SQUIBB COMPANY-12716742

PATIENT
  Age: 39 Year
  Sex: Female
  Weight: 103 kg

DRUGS (1)
  1. DEFINITY [Suspect]
     Indication: STRESS ECHOCARDIOGRAM
     Route: 040
     Dates: start: 20040928, end: 20040928

REACTIONS (1)
  - BACK PAIN [None]
